FAERS Safety Report 5376757-2 (Version None)
Quarter: 2007Q3

REPORT INFORMATION
  Report Type: 
  Country: None (occurrence: None)
  Receive Date: 20070703
  Receipt Date: 20070621
  Transmission Date: 20080115
  Serious: Yes (Other)
  Sender: FDA-Public Use
  Company Number: US-JNJFOC-20060806901

PATIENT
  Sex: Female

DRUGS (5)
  1. REMICADE [Suspect]
     Indication: SJOGREN'S SYNDROME
  2. REMICADE [Suspect]
     Indication: RHEUMATOID ARTHRITIS
  3. HUMIRA [Suspect]
     Indication: SJOGREN'S SYNDROME
  4. HUMIRA [Suspect]
     Indication: RHEUMATOID ARTHRITIS
  5. METHOTREXATE [Concomitant]

REACTIONS (1)
  - B-CELL LYMPHOMA [None]
